FAERS Safety Report 5271072-X (Version None)
Quarter: 2007Q1

REPORT INFORMATION
  Report Type: 
  Country: None (occurrence: None)
  Receive Date: 20070321
  Receipt Date: 20070320
  Transmission Date: 20070707
  Serious: Yes (Death, Hospitalization)
  Sender: FDA-Public Use
  Company Number: US-GLAXOSMITHKLINE-A0643844A

PATIENT
  Age: 51 Year
  Sex: Male

DRUGS (1)
  1. FLOLAN [Suspect]
     Indication: PULMONARY HYPERTENSION
     Route: 042

REACTIONS (6)
  - CARDIO-RESPIRATORY ARREST [None]
  - CATHETER RELATED COMPLICATION [None]
  - CATHETER RELATED INFECTION [None]
  - MULTIPLE SCLEROSIS [None]
  - PHARMACEUTICAL PRODUCT COMPLAINT [None]
  - SEPSIS [None]
